FAERS Safety Report 17967355 (Version 1)
Quarter: 2020Q2

REPORT INFORMATION
  Report Type: Spontaneous
  Country: US (occurrence: US)
  Receive Date: 20200630
  Receipt Date: 20200630
  Transmission Date: 20200714
  Serious: Yes (Hospitalization)
  Sender: FDA-Public Use
  Company Number: None

PATIENT
  Weight: 89.2 kg

DRUGS (1)
  1. CISPLATIN. [Suspect]
     Active Substance: CISPLATIN

REACTIONS (5)
  - Febrile neutropenia [None]
  - Pain [None]
  - Peripheral artery thrombosis [None]
  - Stomatitis [None]
  - Injection site swelling [None]

NARRATIVE: CASE EVENT DATE: 20200621
